FAERS Safety Report 6398977-0 (Version None)
Quarter: 2009Q4

REPORT INFORMATION
  Report Type: 
  Country: None (occurrence: None)
  Receive Date: 20091013
  Receipt Date: 20091006
  Transmission Date: 20100525
  Serious: Yes (Other)
  Sender: FDA-Public Use
  Company Number: US-BAYER-200935517NA

PATIENT
  Age: 66 Year
  Sex: Male

DRUGS (1)
  1. EOVIST [Suspect]
     Indication: NUCLEAR MAGNETIC RESONANCE IMAGING
     Dosage: AS USED: 10 ML
     Dates: start: 20091006, end: 20091006

REACTIONS (4)
  - BLOOD PRESSURE INCREASED [None]
  - DYSKINESIA [None]
  - DYSPNOEA [None]
  - URINARY INCONTINENCE [None]
